FAERS Safety Report 4539678-0 (Version None)
Quarter: 2004Q4

REPORT INFORMATION
  Report Type: 
  Country: None (occurrence: None)
  Receive Date: 20041228
  Receipt Date: 20010601
  Transmission Date: 20050328
  Serious: Yes (Other)
  Sender: FDA-Public Use
  Company Number: US-MERCK-01060076

PATIENT
  Age: 53 Year
  Sex: Male
  Weight: 112 kg

DRUGS (9)
  1. VIOXX [Suspect]
     Indication: ARTHRALGIA
     Route: 048
     Dates: start: 20000201, end: 20000301
  2. VIOXX [Suspect]
     Route: 048
     Dates: start: 20000823, end: 20010610
  3. VIOXX [Suspect]
     Indication: OSTEOARTHRITIS
     Route: 048
     Dates: start: 20000201, end: 20000301
  4. VIOXX [Suspect]
     Route: 048
     Dates: start: 20000823, end: 20010610
  5. CELEBREX [Suspect]
     Indication: ARTHRITIS
     Route: 065
     Dates: start: 19990301, end: 20000201
  6. ANAFRANIL [Concomitant]
     Route: 065
  7. LIDEX [Concomitant]
     Route: 065
  8. PROVENTIL [Concomitant]
     Route: 055
  9. LIPITOR [Concomitant]
     Route: 065

REACTIONS (22)
  - ACTINIC KERATOSIS [None]
  - ANXIETY [None]
  - BLOOD PRESSURE INCREASED [None]
  - CATARACT [None]
  - CATARACT NUCLEAR [None]
  - DEPRESSION [None]
  - DERMATITIS ALLERGIC [None]
  - DIABETES MELLITUS NON-INSULIN-DEPENDENT [None]
  - DRUG ERUPTION [None]
  - ECZEMA [None]
  - ERECTILE DYSFUNCTION [None]
  - HEART INJURY [None]
  - HYPERKERATOSIS [None]
  - HYPERTENSION [None]
  - INFECTION [None]
  - LUNG INJURY [None]
  - NEOPLASM SKIN [None]
  - NEURODERMATITIS [None]
  - OPEN ANGLE GLAUCOMA [None]
  - PARAESTHESIA [None]
  - SLEEP DISORDER [None]
  - WEIGHT INCREASED [None]
